FAERS Safety Report 4441496-9 (Version None)
Quarter: 2004Q3

REPORT INFORMATION
  Report Type: 
  Country: None (occurrence: None)
  Receive Date: 20040728
  Receipt Date: 20040512
  Transmission Date: 20050211
  Serious: No
  Sender: FDA-Public Use
  Company Number: USA040567424

PATIENT
  Sex: Female

DRUGS (2)
  1. STRATTERA [Suspect]
     Indication: DEPRESSION
     Dosage: 60 MG DAY
     Dates: start: 20020201
  2. WELLBUTRIN [Concomitant]

REACTIONS (3)
  - FEELING HOT [None]
  - HYPERHIDROSIS [None]
  - TEMPERATURE INTOLERANCE [None]
